FAERS Safety Report 15886422 (Version 2)
Quarter: 2019Q2

REPORT INFORMATION
  Report Type: Spontaneous
  Country: US (occurrence: US)
  Receive Date: 20190129
  Receipt Date: 20190509
  Transmission Date: 20190711
  Serious: No
  Sender: FDA-Public Use
  Company Number: US-GLAXOSMITHKLINE-US2019008947

PATIENT
  Sex: Female

DRUGS (1)
  1. BENLYSTA [Suspect]
     Active Substance: BELIMUMAB
     Indication: PRODUCT USED FOR UNKNOWN INDICATION
     Dosage: UNK
     Route: 058
     Dates: start: 201808

REACTIONS (6)
  - Underdose [Unknown]
  - Injection site rash [Unknown]
  - Injection site pain [Unknown]
  - Overdose [Unknown]
  - Wrong technique in device usage process [Unknown]
  - Injection site pruritus [Unknown]
